FAERS Safety Report 20962642 (Version 1)
Quarter: 2022Q2

REPORT INFORMATION
  Report Type: Report from Study
  Country: BR (occurrence: BR)
  Receive Date: 20220615
  Receipt Date: 20220615
  Transmission Date: 20220721
  Serious: Yes (Other)
  Sender: FDA-Public Use
  Company Number: BR-ABBVIE-22K-020-4429984-00

PATIENT
  Sex: Female

DRUGS (6)
  1. HUMIRA [Suspect]
     Active Substance: ADALIMUMAB
     Indication: Psoriasis
     Route: 058
     Dates: start: 202105, end: 202105
  2. HUMIRA [Suspect]
     Active Substance: ADALIMUMAB
     Dosage: 1 PEN
     Route: 058
     Dates: start: 2021, end: 202112
  3. STELARA [Suspect]
     Active Substance: USTEKINUMAB
     Indication: Product used for unknown indication
     Route: 065
     Dates: start: 202201
  4. DIGELIV [Concomitant]
     Indication: Dyspepsia
     Route: 048
  5. OTILONIUM BROMIDE [Concomitant]
     Active Substance: OTILONIUM BROMIDE
     Indication: Dyspepsia
     Dosage: 1 IN THE MORNING AND 1 AT NIGHT
     Route: 048
  6. DIMETHICONE [Concomitant]
     Active Substance: DIMETHICONE
     Indication: Dyspepsia
     Route: 065

REACTIONS (9)
  - Intestinal ulcer [Not Recovered/Not Resolved]
  - Colitis [Not Recovered/Not Resolved]
  - Immunodeficiency [Recovered/Resolved]
  - Gastrointestinal inflammation [Not Recovered/Not Resolved]
  - Stress at work [Unknown]
  - Wound [Recovering/Resolving]
  - Therapeutic product effect decreased [Recovered/Resolved]
  - Psoriasis [Recovering/Resolving]
  - Rash pustular [Recovering/Resolving]

NARRATIVE: CASE EVENT DATE: 20210101
